FAERS Safety Report 9857308 (Version 1)
Quarter: 2014Q1

REPORT INFORMATION
  Report Type: Spontaneous
  Country: DK (occurrence: DK)
  Receive Date: 20140130
  Receipt Date: 20140130
  Transmission Date: 20141002
  Serious: Yes (Disabling)
  Sender: FDA-Public Use
  Company Number: PHHY2014DK005513

PATIENT
  Age: 44 Year
  Sex: Male
  Weight: 110 kg

DRUGS (1)
  1. OTRIVIN [Suspect]
     Indication: NASAL OBSTRUCTION
     Dosage: UNK
     Route: 045
     Dates: start: 19800101

REACTIONS (1)
  - Polyneuropathy chronic [Not Recovered/Not Resolved]
